FAERS Safety Report 24391908 (Version 1)
Quarter: 2024Q4

REPORT INFORMATION
  Report Type: Spontaneous
  Country: US (occurrence: None)
  Receive Date: 20241002
  Receipt Date: 20241002
  Transmission Date: 20250114
  Serious: No
  Sender: Public
  Company Number: None

PATIENT
  Age: 74 Year
  Sex: Male
  Weight: 195 kg

DRUGS (1)
  1. PACLITAXEL [Suspect]
     Active Substance: PACLITAXEL
     Indication: Laryngeal cancer
     Dosage: OTHER FREQUENCY : ONCE;?
     Route: 042
     Dates: start: 202402, end: 20240208

REACTIONS (3)
  - Hyperhidrosis [None]
  - Dyspnoea [None]
  - Syncope [None]

NARRATIVE: CASE EVENT DATE: 20240207
